FAERS Safety Report 23309805 (Version 2)
Quarter: 2023Q4

REPORT INFORMATION
  Report Type: Spontaneous
  Country: US (occurrence: US)
  Receive Date: 20231218
  Receipt Date: 20231226
  Transmission Date: 20240110
  Serious: No
  Sender: FDA-Public Use
  Company Number: US-BAYER-2023A178214

PATIENT
  Age: 19 Year
  Sex: Male

DRUGS (2)
  1. JIVI [Suspect]
     Active Substance: DAMOCTOCOG ALFA PEGOL
     Dosage: 1500 UNITS/3000 UNITS
  2. JIVI [Suspect]
     Active Substance: DAMOCTOCOG ALFA PEGOL
     Dosage: 1500 UNITS/3000 UNITS

REACTIONS (3)
  - Fall [None]
  - Joint injury [None]
  - Joint swelling [None]

NARRATIVE: CASE EVENT DATE: 20231209
